FAERS Safety Report 8136265 (Version 29)
Quarter: 2021Q2

REPORT INFORMATION
  Report Type: Spontaneous
  Country: GB (occurrence: GB)
  Receive Date: 20110914
  Receipt Date: 20210601
  Transmission Date: 20210717
  Serious: Yes (Life-Threatening, Hospitalization, Disabling, Other)
  Sender: FDA-Public Use
  Company Number: GB-ASTRAZENECA-2011SE53176

PATIENT
  Age: 27 Year
  Sex: Female
  Weight: 63.5 kg

DRUGS (60)
  1. DIAZEPAM. [Interacting]
     Active Substance: DIAZEPAM
     Indication: MUSCLE SPASMS
     Route: 065
     Dates: start: 20110725
  2. PROCYCLIDINE HYDROCHLORIDE [Interacting]
     Active Substance: PROCYCLIDINE HYDROCHLORIDE
     Indication: EXTRAPYRAMIDAL DISORDER
     Route: 048
     Dates: start: 20110415
  3. PROCYCLIDINE HYDROCHLORIDE [Interacting]
     Active Substance: PROCYCLIDINE HYDROCHLORIDE
     Indication: OCULOGYRIC CRISIS
     Route: 048
     Dates: start: 20110415
  4. PAROXETINE. [Interacting]
     Active Substance: PAROXETINE
     Indication: DEPRESSION
     Route: 048
     Dates: start: 1997, end: 201105
  5. PAROXETINE. [Interacting]
     Active Substance: PAROXETINE
     Indication: POST-TRAUMATIC STRESS DISORDER
     Route: 048
     Dates: start: 201105, end: 20110706
  6. TRAMADOL HYDROCHLORIDE. [Interacting]
     Active Substance: TRAMADOL HYDROCHLORIDE
     Indication: NECK PAIN
     Dosage: 4 CYCLICAL, QD
     Route: 048
     Dates: start: 20080722
  7. SEROXAT [Interacting]
     Active Substance: PAROXETINE HYDROCHLORIDE
     Indication: DEPRESSION
     Dosage: 60MG THREE TIMES PER DAY
     Route: 048
     Dates: start: 19990801, end: 201105
  8. CODEINE [Interacting]
     Active Substance: CODEINE
     Indication: SEROTONIN SYNDROME
     Route: 048
     Dates: start: 2008, end: 2008
  9. DIAZEPAM. [Interacting]
     Active Substance: DIAZEPAM
     Indication: SEROTONIN SYNDROME
     Dosage: 8 MG, QD
     Route: 065
     Dates: start: 20110725
  10. DIAZEPAM. [Interacting]
     Active Substance: DIAZEPAM
     Indication: MUSCLE SPASMS
     Route: 065
     Dates: start: 20110725
  11. TRAMADOL HYDROCHLORIDE. [Interacting]
     Active Substance: TRAMADOL HYDROCHLORIDE
     Indication: ANALGESIC THERAPY
     Dosage: 4 CYCLICAL, QD
     Route: 048
     Dates: start: 20080722
  12. TRAMADOL HYDROCHLORIDE. [Interacting]
     Active Substance: TRAMADOL HYDROCHLORIDE
     Indication: ANALGESIC THERAPY
     Dosage: 4 CYCLICAL, QD (UNSURE) 2008/2009,
     Route: 048
     Dates: start: 20081201, end: 20101210
  13. TRAMADOL HYDROCHLORIDE. [Interacting]
     Active Substance: TRAMADOL HYDROCHLORIDE
     Indication: OCULOGYRIC CRISIS
     Dosage: 4 CYCLICAL, QD (UNSURE) 2008/2009,
     Route: 048
     Dates: start: 20081201, end: 20101210
  14. MIRTAZAPINE. [Interacting]
     Active Substance: MIRTAZAPINE
     Indication: DEPRESSION
     Dosage: UNSURE
     Route: 048
     Dates: start: 20101007, end: 20101012
  15. SEROXAT [Interacting]
     Active Substance: PAROXETINE HYDROCHLORIDE
     Indication: DEPRESSION
     Dosage: 20.0MG UNKNOWN
     Route: 048
     Dates: start: 1997
  16. AMITRIPTYLINE HYDROCHLORIDE. [Interacting]
     Active Substance: AMITRIPTYLINE HYDROCHLORIDE
     Indication: MUSCLE SPASMS
     Route: 065
     Dates: start: 20110810
  17. OMEPRAZOLE. [Interacting]
     Active Substance: OMEPRAZOLE
     Indication: DYSPEPSIA
     Route: 048
     Dates: start: 20110525
  18. DIAZEPAM. [Interacting]
     Active Substance: DIAZEPAM
     Indication: MUSCLE SPASMS
     Dosage: 8 MG, QD
     Route: 065
     Dates: start: 20110725
  19. DIAZEPAM. [Interacting]
     Active Substance: DIAZEPAM
     Indication: SEROTONIN SYNDROME
     Route: 065
     Dates: start: 20110725
  20. PAROXETINE. [Interacting]
     Active Substance: PAROXETINE
     Indication: DEPRESSION
     Route: 048
     Dates: start: 201105, end: 20110706
  21. TRAMADOL HYDROCHLORIDE. [Interacting]
     Active Substance: TRAMADOL HYDROCHLORIDE
     Indication: BACK PAIN
     Route: 065
     Dates: start: 1995, end: 1995
  22. SEROXAT [Interacting]
     Active Substance: PAROXETINE HYDROCHLORIDE
     Indication: DEPRESSION
     Route: 048
     Dates: start: 201105, end: 20110706
  23. PHOSPHORUS [Interacting]
     Active Substance: PHOSPHORUS
     Indication: PRODUCT USED FOR UNKNOWN INDICATION
     Route: 065
  24. LORAZEPAM. [Interacting]
     Active Substance: LORAZEPAM
     Indication: SEDATION
     Route: 048
     Dates: start: 20110523, end: 20110627
  25. PROCYCLIDINE HYDROCHLORIDE [Interacting]
     Active Substance: PROCYCLIDINE HYDROCHLORIDE
     Indication: OCULOGYRIC CRISIS
     Route: 048
     Dates: start: 20110503, end: 20110510
  26. TRAMADOL HYDROCHLORIDE. [Interacting]
     Active Substance: TRAMADOL HYDROCHLORIDE
     Indication: OCULOGYRIC CRISIS
     Route: 065
     Dates: start: 1995, end: 1995
  27. SEROXAT [Interacting]
     Active Substance: PAROXETINE HYDROCHLORIDE
     Indication: PRODUCT USED FOR UNKNOWN INDICATION
     Dosage: 60.0MG UNKNOWN
     Route: 048
     Dates: start: 1997
  28. SEROXAT [Interacting]
     Active Substance: PAROXETINE HYDROCHLORIDE
     Indication: DEPRESSION
     Dosage: 60.0MG UNKNOWN
     Route: 048
     Dates: start: 1997
  29. CODEINE [Interacting]
     Active Substance: CODEINE
     Indication: SEROTONIN SYNDROME
     Route: 048
     Dates: start: 2002, end: 2002
  30. DOMPERIDONE [Interacting]
     Active Substance: DOMPERIDONE
     Indication: PRODUCT USED FOR UNKNOWN INDICATION
     Route: 065
  31. AMITRIPTYLINE HYDROCHLORIDE. [Interacting]
     Active Substance: AMITRIPTYLINE HYDROCHLORIDE
     Indication: NEURALGIA
     Route: 065
     Dates: start: 20110810
  32. QUETIAPINE FUMARATE. [Suspect]
     Active Substance: QUETIAPINE FUMARATE
     Indication: PSYCHOTIC DISORDER
     Dosage: 300.0MG UNKNOWN
     Route: 048
     Dates: start: 20110224, end: 20110506
  33. LORAZEPAM. [Interacting]
     Active Substance: LORAZEPAM
     Indication: SEDATION
     Route: 048
     Dates: start: 20110224, end: 20110410
  34. PROCYCLIDINE HYDROCHLORIDE [Interacting]
     Active Substance: PROCYCLIDINE HYDROCHLORIDE
     Indication: EXTRAPYRAMIDAL DISORDER
     Route: 048
     Dates: start: 1995, end: 1996
  35. TRAMADOL HYDROCHLORIDE. [Interacting]
     Active Substance: TRAMADOL HYDROCHLORIDE
     Indication: ANALGESIC THERAPY
     Route: 065
     Dates: start: 1995, end: 1995
  36. TRAMADOL HYDROCHLORIDE. [Interacting]
     Active Substance: TRAMADOL HYDROCHLORIDE
     Indication: OCULOGYRIC CRISIS
     Dosage: 4 CYCLICAL, QD
     Route: 048
     Dates: start: 20080722
  37. TRAMADOL HYDROCHLORIDE. [Interacting]
     Active Substance: TRAMADOL HYDROCHLORIDE
     Indication: BACK PAIN
     Dosage: 4 CYCLICAL, QD (UNSURE) 2008/2009,
     Route: 048
     Dates: start: 20081201, end: 20101210
  38. TRAMADOL HYDROCHLORIDE. [Interacting]
     Active Substance: TRAMADOL HYDROCHLORIDE
     Indication: NECK PAIN
     Dosage: 4 CYCLICAL, QD (UNSURE) 2008/2009,
     Route: 048
     Dates: start: 20081201, end: 20101210
  39. MIRTAZAPINE. [Interacting]
     Active Substance: MIRTAZAPINE
     Indication: DEPRESSION
     Route: 048
     Dates: start: 20100923, end: 20101108
  40. SEROXAT [Interacting]
     Active Substance: PAROXETINE HYDROCHLORIDE
     Indication: DEPRESSION
     Dosage: UNKNOWN
     Route: 048
     Dates: start: 201012
  41. CODEINE [Interacting]
     Active Substance: CODEINE
     Indication: ANALGESIC THERAPY
     Route: 048
     Dates: start: 2008, end: 2008
  42. AMITRIPTYLINE HYDROCHLORIDE. [Interacting]
     Active Substance: AMITRIPTYLINE HYDROCHLORIDE
     Indication: SEROTONIN SYNDROME
     Route: 065
     Dates: start: 20110810
  43. PROCYCLIDINE HYDROCHLORIDE [Interacting]
     Active Substance: PROCYCLIDINE HYDROCHLORIDE
     Indication: OCULOGYRIC CRISIS
     Route: 048
     Dates: start: 1995, end: 1996
  44. PAROXETINE. [Interacting]
     Active Substance: PAROXETINE
     Indication: POST-TRAUMATIC STRESS DISORDER
     Route: 048
     Dates: start: 19990801, end: 20110706
  45. TRAMADOL HYDROCHLORIDE. [Interacting]
     Active Substance: TRAMADOL HYDROCHLORIDE
     Indication: NECK PAIN
     Route: 065
     Dates: start: 1995, end: 1995
  46. CODEINE [Interacting]
     Active Substance: CODEINE
     Indication: ANALGESIC THERAPY
     Route: 048
     Dates: start: 2002, end: 2002
  47. CODEINE [Interacting]
     Active Substance: CODEINE
     Indication: SEROTONIN SYNDROME
     Dosage: 24 ? EVERY HOUR
     Route: 048
     Dates: start: 20110615, end: 20110723
  48. PROCYCLIDINE HYDROCHLORIDE [Interacting]
     Active Substance: PROCYCLIDINE HYDROCHLORIDE
     Indication: EXTRAPYRAMIDAL DISORDER
     Route: 048
     Dates: start: 20110324, end: 20110506
  49. PROCYCLIDINE HYDROCHLORIDE [Interacting]
     Active Substance: PROCYCLIDINE HYDROCHLORIDE
     Indication: OCULOGYRIC CRISIS
     Route: 048
     Dates: start: 20110324, end: 20110506
  50. PAROXETINE. [Interacting]
     Active Substance: PAROXETINE
     Indication: POST-TRAUMATIC STRESS DISORDER
     Route: 048
     Dates: start: 1997, end: 201105
  51. TRAMADOL HYDROCHLORIDE. [Interacting]
     Active Substance: TRAMADOL HYDROCHLORIDE
     Indication: BACK PAIN
     Dosage: 4 CYCLICAL, QD
     Route: 048
     Dates: start: 20080722
  52. SEROXAT [Interacting]
     Active Substance: PAROXETINE HYDROCHLORIDE
     Indication: PRODUCT USED FOR UNKNOWN INDICATION
     Dosage: 60MG THREE TIMES PER DAY
     Route: 048
     Dates: start: 19990801, end: 201105
  53. CODEINE [Interacting]
     Active Substance: CODEINE
     Indication: ANALGESIC THERAPY
     Dosage: 24 ? EVERY HOUR
     Route: 048
     Dates: start: 20110615, end: 20110723
  54. DIAZEPAM. [Interacting]
     Active Substance: DIAZEPAM
     Indication: SEROTONIN SYNDROME
     Route: 065
     Dates: start: 20110725
  55. PROCYCLIDINE HYDROCHLORIDE [Interacting]
     Active Substance: PROCYCLIDINE HYDROCHLORIDE
     Indication: EXTRAPYRAMIDAL DISORDER
     Route: 048
     Dates: start: 20110503, end: 20110510
  56. PAROXETINE. [Interacting]
     Active Substance: PAROXETINE
     Indication: DEPRESSION
     Route: 048
     Dates: start: 19990801, end: 20110706
  57. CLONAZEPAM. [Interacting]
     Active Substance: CLONAZEPAM
     Indication: SEDATION
     Dosage: UNSURE
     Route: 048
     Dates: start: 20110224, end: 20110410
  58. SEROXAT [Interacting]
     Active Substance: PAROXETINE HYDROCHLORIDE
     Indication: PRODUCT USED FOR UNKNOWN INDICATION
     Route: 048
     Dates: start: 201105, end: 20110706
  59. SEROXAT [Interacting]
     Active Substance: PAROXETINE HYDROCHLORIDE
     Indication: PRODUCT USED FOR UNKNOWN INDICATION
     Dosage: 20.0MG UNKNOWN
     Route: 048
     Dates: start: 1997
  60. SEROXAT [Interacting]
     Active Substance: PAROXETINE HYDROCHLORIDE
     Indication: PRODUCT USED FOR UNKNOWN INDICATION
     Dosage: UNKNOWN
     Route: 048
     Dates: start: 201012

REACTIONS (87)
  - Cyanosis [Unknown]
  - Depression [Unknown]
  - Restlessness [Unknown]
  - Hypoaesthesia [Not Recovered/Not Resolved]
  - Skin discolouration [Not Recovered/Not Resolved]
  - H1N1 influenza [Unknown]
  - Asthenia [Unknown]
  - Gait disturbance [Unknown]
  - Premature labour [Unknown]
  - Exposure during pregnancy [Unknown]
  - Drug interaction [Unknown]
  - Arthralgia [Unknown]
  - Tremor [Not Recovered/Not Resolved]
  - Feeling of body temperature change [Unknown]
  - Psychotic disorder [Recovered/Resolved]
  - Emotional disorder [Unknown]
  - Hallucinations, mixed [Unknown]
  - Dyskinesia [Unknown]
  - Seizure [Unknown]
  - Toxicity to various agents [Unknown]
  - Confusional state [Not Recovered/Not Resolved]
  - Paralysis [Unknown]
  - Neuroleptic malignant syndrome [Unknown]
  - Incontinence [Not Recovered/Not Resolved]
  - Agitation [Unknown]
  - Menstrual disorder [Unknown]
  - Vomiting [Unknown]
  - Tinnitus [Unknown]
  - Nightmare [Unknown]
  - Gastric pH decreased [Unknown]
  - Hypoaesthesia oral [Unknown]
  - Pruritus [Unknown]
  - Decreased appetite [Unknown]
  - Muscle disorder [Unknown]
  - Mydriasis [Unknown]
  - Limb injury [Unknown]
  - Headache [Unknown]
  - Swelling face [Unknown]
  - Vision blurred [Unknown]
  - Speech disorder [Unknown]
  - Eye pain [Unknown]
  - Sleep disorder [Unknown]
  - Sensory loss [Unknown]
  - Disturbance in attention [Unknown]
  - Swollen tongue [Unknown]
  - Illness [Unknown]
  - Mania [Unknown]
  - Muscle spasms [Not Recovered/Not Resolved]
  - Anxiety [Unknown]
  - Contusion [Not Recovered/Not Resolved]
  - Visual impairment [Unknown]
  - Feeling jittery [Unknown]
  - Parosmia [Unknown]
  - Heart rate increased [Unknown]
  - Dyspnoea [Unknown]
  - Suicidal ideation [Not Recovered/Not Resolved]
  - Paraesthesia [Unknown]
  - Feeling of despair [Unknown]
  - Drug ineffective [Unknown]
  - Diarrhoea [Unknown]
  - Drooling [Unknown]
  - Tachycardia [Unknown]
  - Mood swings [Unknown]
  - Urinary retention [Unknown]
  - Pallor [Unknown]
  - Serotonin syndrome [Not Recovered/Not Resolved]
  - Dizziness [Unknown]
  - Aphasia [Not Recovered/Not Resolved]
  - Drug withdrawal syndrome [Unknown]
  - Restless legs syndrome [Not Recovered/Not Resolved]
  - Fatigue [Unknown]
  - Disorientation [Not Recovered/Not Resolved]
  - Musculoskeletal stiffness [Unknown]
  - Balance disorder [Unknown]
  - Blood sodium decreased [Unknown]
  - Schizophrenia [Unknown]
  - Derealisation [Not Recovered/Not Resolved]
  - Somnolence [Not Recovered/Not Resolved]
  - Therapeutic product ineffective [Unknown]
  - Fatigue [Unknown]
  - Muscle rigidity [Unknown]
  - Cogwheel rigidity [Unknown]
  - Hyperhidrosis [Unknown]
  - Dissociation [Not Recovered/Not Resolved]
  - Delirium [Unknown]
  - Dystonia [Unknown]
  - Pyrexia [Unknown]

NARRATIVE: CASE EVENT DATE: 200012
